FAERS Safety Report 5168131-9 (Version None)
Quarter: 2006Q4

REPORT INFORMATION
  Report Type: 
  Country: None (occurrence: None)
  Receive Date: 20061208
  Receipt Date: 20061127
  Transmission Date: 20070319
  Serious: Yes (Hospitalization)
  Sender: FDA-Public Use
  Company Number: DE-BAYER-200611614BVD

PATIENT
  Age: 78 Year
  Sex: Female
  Weight: 85 kg

DRUGS (4)
  1. AVELOX [Suspect]
     Indication: PNEUMONIA
     Route: 042
     Dates: start: 20061122, end: 20061126
  2. VANCOMYCIN HCL [Concomitant]
     Indication: DRUG USE FOR UNKNOWN INDICATION
  3. FORTUM [Concomitant]
     Indication: PNEUMONIA
     Route: 042
     Dates: start: 20061122, end: 20061126
  4. AMPICILLIN SODIUM [Concomitant]
     Route: 042
     Dates: start: 20061122, end: 20061126

REACTIONS (2)
  - BLOOD CREATINE PHOSPHOKINASE INCREASED [None]
  - RHABDOMYOLYSIS [None]
